APPROVED DRUG PRODUCT: TRETINOIN
Active Ingredient: TRETINOIN
Strength: 0.025%
Dosage Form/Route: GEL;TOPICAL
Application: A075529 | Product #001 | TE Code: AB
Applicant: PADAGIS US LLC
Approved: Feb 22, 2000 | RLD: No | RS: No | Type: RX